FAERS Safety Report 7214884-5 (Version None)
Quarter: 2011Q1

REPORT INFORMATION
  Report Type: 
  Country: None (occurrence: None)
  Receive Date: 20110107
  Receipt Date: 20101013
  Transmission Date: 20110831
  Serious: No
  Sender: FDA-Public Use
  Company Number: A0856102A

PATIENT
  Age: 53 Year
  Sex: Female

DRUGS (2)
  1. LOVAZA [Suspect]
     Indication: BLOOD CHOLESTEROL INCREASED
     Dosage: 2CAP TWICE PER DAY
     Route: 048
  2. LIPITOR [Concomitant]

REACTIONS (1)
  - LOW DENSITY LIPOPROTEIN INCREASED [None]
